FAERS Safety Report 26001355 (Version 1)
Quarter: 2025Q4

REPORT INFORMATION
  Report Type: Spontaneous
  Country: US (occurrence: US)
  Receive Date: 20251105
  Receipt Date: 20251105
  Transmission Date: 20260117
  Serious: Yes (Life-Threatening)
  Sender: ABBVIE
  Company Number: US-MLMSERVICE-20250929-PI662543-00270-1

PATIENT
  Age: 25 Year
  Sex: Female

DRUGS (9)
  1. PREDNISOLONE [Suspect]
     Active Substance: PREDNISOLONE
     Indication: Uveitis
     Dosage: TAPER
     Route: 061
  2. PREDNISOLONE [Suspect]
     Active Substance: PREDNISOLONE
     Route: 061
  3. SIROLIMUS [Concomitant]
     Active Substance: SIROLIMUS
     Indication: Uveitis
     Route: 065
  4. TRIAMCINOLONE [Concomitant]
     Active Substance: TRIAMCINOLONE
     Indication: Uveitis
     Route: 050
  5. TACROLIMUS [Concomitant]
     Active Substance: TACROLIMUS
     Indication: Uveitis
     Route: 065
  6. RIMEXOLONE [Suspect]
     Active Substance: RIMEXOLONE
     Indication: Uveitis
     Route: 065
  7. MYCOPHENOLATE MOFETIL [Suspect]
     Active Substance: MYCOPHENOLATE MOFETIL
     Indication: Immunosuppressant drug therapy
     Route: 065
  8. DIFLUPREDNATE [Suspect]
     Active Substance: DIFLUPREDNATE
     Indication: Uveitis
     Route: 065
  9. CYCLOSPORINE [Suspect]
     Active Substance: CYCLOSPORINE
     Indication: Uveitis
     Route: 048

REACTIONS (5)
  - Cataract subcapsular [Unknown]
  - Uveitis [Recovered/Resolved]
  - Uveitis [Recovered/Resolved]
  - Drug ineffective [Recovered/Resolved]
  - Drug ineffective [Recovered/Resolved]
